FAERS Safety Report 10601729 (Version 1)
Quarter: 2014Q4

REPORT INFORMATION
  Report Type: Spontaneous
  Country: IE (occurrence: IE)
  Receive Date: 20141124
  Receipt Date: 20141124
  Transmission Date: 20150529
  Serious: Yes (Hospitalization, Other)
  Sender: FDA-Public Use
  Company Number: IE-BIAL, PORTELA + CA S.A.-BIAL-02670

PATIENT
  Age: 49 Year
  Sex: Female

DRUGS (7)
  1. CALCICHEW-D3 FORTE [Concomitant]
     Active Substance: CALCIUM\CHOLECALCIFEROL
     Dosage: 1 UNK, DAILY
  2. TEGRETOL [Concomitant]
     Active Substance: CARBAMAZEPINE
     Dosage: 800 MG, DAILY
     Dates: start: 20101012, end: 20141010
  3. ZEBINIX (ESLICARBAZEPINE ACETATE) [Suspect]
     Active Substance: ESLICARBAZEPINE ACETATE
     Indication: PRODUCT USED FOR UNKNOWN INDICATION
     Dosage: 1200 MG, DAILY
     Route: 048
     Dates: start: 20140916, end: 20141021
  4. ZEBINIX (ESLICARBAZEPINE ACETATE) [Suspect]
     Active Substance: ESLICARBAZEPINE ACETATE
     Indication: PRODUCT USED FOR UNKNOWN INDICATION
     Route: 048
  5. KEPPRA [Concomitant]
     Active Substance: LEVETIRACETAM
     Dosage: 250 MG, 2X / DAY
     Dates: start: 20141022
  6. FRISIUM [Concomitant]
     Active Substance: CLOBAZAM
     Dosage: 10 MG, 1X / DAY
     Dates: start: 20130416, end: 20141010
  7. ZEBINIX (ESLICARBAZEPINE ACETATE) [Suspect]
     Active Substance: ESLICARBAZEPINE ACETATE
     Indication: PRODUCT USED FOR UNKNOWN INDICATION
     Dosage: 800 MG, DAILY
     Route: 048
     Dates: start: 20141021

REACTIONS (3)
  - Chest pain [Recovering/Resolving]
  - Fatigue [Recovering/Resolving]
  - Seizure [Unknown]

NARRATIVE: CASE EVENT DATE: 201410
